FAERS Safety Report 22939800 (Version 2)
Quarter: 2023Q4

REPORT INFORMATION
  Report Type: Report from Study
  Country: CL (occurrence: CL)
  Receive Date: 20230913
  Receipt Date: 20231112
  Transmission Date: 20240110
  Serious: Yes (Hospitalization)
  Sender: FDA-Public Use
  Company Number: CL-002147023-NVSC2023CL153158

PATIENT
  Age: 47 Year
  Sex: Male

DRUGS (1)
  1. COSENTYX [Suspect]
     Active Substance: SECUKINUMAB
     Indication: Ankylosing spondylitis
     Dosage: 150 MG, QMO
     Route: 058
     Dates: start: 20190710, end: 20230321

REACTIONS (5)
  - Cerebrovascular accident [Unknown]
  - General physical health deterioration [Unknown]
  - Bone pain [Unknown]
  - Arthropathy [Unknown]
  - Speech disorder [Unknown]

NARRATIVE: CASE EVENT DATE: 20230807
